FAERS Safety Report 15374972 (Version 1)
Quarter: 2018Q3

REPORT INFORMATION
  Report Type: Spontaneous
  Country: US (occurrence: US)
  Receive Date: 20180906
  Receipt Date: 20180906
  Transmission Date: 20181010
  Serious: Yes (Other)
  Sender: FDA-Public Use
  Company Number: None

PATIENT
  Age: 30 Year
  Sex: Female
  Weight: 120.9 kg

DRUGS (1)
  1. YESCARTA [Suspect]
     Active Substance: AXICABTAGENE CILOLEUCEL
     Indication: DIFFUSE LARGE B-CELL LYMPHOMA
     Route: 042

REACTIONS (13)
  - Encephalopathy [None]
  - Diffuse large B-cell lymphoma [None]
  - Renal failure [None]
  - Respiratory failure [None]
  - Pulmonary mass [None]
  - Neurotoxicity [None]
  - Hypercalcaemia of malignancy [None]
  - Dialysis [None]
  - Central nervous system lesion [None]
  - Cytokine release syndrome [None]
  - Confusional state [None]
  - Malignant neoplasm progression [None]
  - Somnolence [None]

NARRATIVE: CASE EVENT DATE: 20180726
